FAERS Safety Report 17428112 (Version 1)
Quarter: 2020Q1

REPORT INFORMATION
  Report Type: Spontaneous
  Country: JP (occurrence: JP)
  Receive Date: 20200217
  Receipt Date: 20200217
  Transmission Date: 20200409
  Serious: Yes (Other)
  Sender: FDA-Public Use
  Company Number: JP-SHIRE-JP202005716

PATIENT

DRUGS (3)
  1. ALLEGRA [Suspect]
     Active Substance: FEXOFENADINE HYDROCHLORIDE
     Indication: RHINITIS ALLERGIC
     Dosage: 30 MILLIGRAM, 1X/DAY:QD
     Route: 048
     Dates: start: 201910, end: 202001
  2. INTUNIV [Suspect]
     Active Substance: GUANFACINE HYDROCHLORIDE
     Indication: ATTENTION DEFICIT/HYPERACTIVITY DISORDER
     Dosage: 2 MILLIGRAM, 1X/DAY:QD
     Route: 048
     Dates: start: 201806, end: 202001
  3. CONCERTA [Suspect]
     Active Substance: METHYLPHENIDATE HYDROCHLORIDE
     Indication: ATTENTION DEFICIT/HYPERACTIVITY DISORDER
     Dosage: 27 MILLIGRAM, 1X/DAY:QD
     Route: 048
     Dates: start: 2018, end: 202001

REACTIONS (1)
  - Long QT syndrome [Recovered/Resolved]

NARRATIVE: CASE EVENT DATE: 201912
